FAERS Safety Report 4356553-5 (Version None)
Quarter: 2004Q2

REPORT INFORMATION
  Report Type: 
  Country: None (occurrence: None)
  Receive Date: 20040506
  Receipt Date: 20040425
  Transmission Date: 20050107
  Serious: Yes (Hospitalization)
  Sender: FDA-Public Use
  Company Number: 04P-062-0258832-00

PATIENT
  Age: 83 Year
  Sex: Female
  Weight: 70 kg

DRUGS (2)
  1. ISOPTIN TAB [Suspect]
     Indication: SUICIDE ATTEMPT
     Dosage: 80 MG, 20 IN ONCE, PER ORAL
     Route: 048
     Dates: start: 20040425, end: 20040425
  2. BISOPROLOL [Suspect]
     Dosage: PER ORAL
     Route: 048
     Dates: end: 20040425

REACTIONS (3)
  - BLOOD PRESSURE SYSTOLIC DECREASED [None]
  - OVERDOSE [None]
  - SUICIDE ATTEMPT [None]
